FAERS Safety Report 19661766 (Version 4)
Quarter: 2021Q4

REPORT INFORMATION
  Report Type: Report from Study
  Country: KR (occurrence: KR)
  Receive Date: 20210805
  Receipt Date: 20211012
  Transmission Date: 20220303
  Serious: Yes (Hospitalization)
  Sender: FDA-Public Use
  Company Number: NVSC2021KR115822

PATIENT
  Age: 62 Year
  Sex: Female
  Weight: 47 kg

DRUGS (12)
  1. ALPELISIB [Suspect]
     Active Substance: ALPELISIB
     Indication: Breast cancer
     Dosage: 300 MG
     Route: 048
     Dates: start: 20161130, end: 20210517
  2. FULVESTRANT [Suspect]
     Active Substance: FULVESTRANT
     Indication: Breast cancer
     Dosage: NO TREATMENT
     Route: 065
  3. FULVESTRANT [Suspect]
     Active Substance: FULVESTRANT
     Dosage: ONCE A MONTH
     Route: 030
     Dates: start: 20210609
  4. METFORMIN [Concomitant]
     Active Substance: METFORMIN HYDROCHLORIDE
     Indication: Hyperglycaemia
     Dosage: 500 MG
     Route: 065
     Dates: start: 20210318
  5. CALCIUM CARBONATE [Concomitant]
     Active Substance: CALCIUM CARBONATE
     Indication: Osteoporosis
     Dosage: 1 TAB
     Route: 065
     Dates: start: 20140828
  6. IBANDRONIC ACID [Concomitant]
     Active Substance: IBANDRONIC ACID
     Indication: Osteoporosis
     Dosage: 150 MG
     Route: 065
     Dates: start: 20140825
  7. TYRENOL [Concomitant]
     Indication: Pyrexia
     Dosage: 2 TAB
     Route: 065
     Dates: start: 20210517
  8. KOMBIGLYZE XR [Concomitant]
     Active Substance: METFORMIN HYDROCHLORIDE\SAXAGLIPTIN HYDROCHLORIDE
     Indication: Hyperglycaemia
     Dosage: 5/500 MG, 1 TAB
     Route: 065
     Dates: start: 20210520
  9. HUMULIN N [Concomitant]
     Active Substance: INSULIN HUMAN
     Indication: Hyperglycaemia
     Dosage: 1000IU/10ML
     Route: 065
     Dates: start: 20210518
  10. BINICAPIN [Concomitant]
     Indication: Hypertension
     Dosage: 10 MG
     Route: 065
     Dates: start: 20210518
  11. PROBIOTICS NOS [Concomitant]
     Active Substance: PROBIOTICS NOS
     Indication: Diarrhoea
     Dosage: 1CAP
     Route: 065
     Dates: start: 20210521
  12. LOPIRIN [Concomitant]
     Indication: Diarrhoea
     Dosage: 2 MG
     Route: 065
     Dates: start: 20210519

REACTIONS (1)
  - Pyelonephritis [Recovered/Resolved]

NARRATIVE: CASE EVENT DATE: 20210518
